FAERS Safety Report 9462471 (Version 1)
Quarter: 2013Q3

REPORT INFORMATION
  Report Type: Spontaneous
  Country: US (occurrence: None)
  Receive Date: 20130815
  Receipt Date: 20130815
  Transmission Date: 20140515
  Serious: Yes (Other)
  Sender: FDA-Public Use
  Company Number: None

PATIENT
  Age: 35 Year
  Sex: Female
  Weight: 87.09 kg

DRUGS (3)
  1. LAMICTAL [Suspect]
  2. VITAMIN D [Concomitant]
  3. ADDERAL [Concomitant]

REACTIONS (3)
  - Rash [None]
  - Paraesthesia oral [None]
  - Skin exfoliation [None]
